FAERS Safety Report 6519140-6 (Version None)
Quarter: 2009Q4

REPORT INFORMATION
  Report Type: 
  Country: None (occurrence: None)
  Receive Date: 20091224
  Receipt Date: 20091224
  Transmission Date: 20100525
  Serious: Yes (Life-Threatening, Hospitalization)
  Sender: FDA-Public Use
  Company Number: None

PATIENT
  Age: 64 Year
  Sex: Male
  Weight: 93.441 kg

DRUGS (1)
  1. ACTOS [Suspect]
     Indication: DIABETES MELLITUS

REACTIONS (5)
  - CARDIAC DISORDER [None]
  - DYSPNOEA [None]
  - FEELING ABNORMAL [None]
  - OEDEMA PERIPHERAL [None]
  - RESPIRATORY RATE DECREASED [None]
